FAERS Safety Report 8905225 (Version 2)
Quarter: 2012Q4

REPORT INFORMATION
  Report Type: 
  Country: IE (occurrence: IE)
  Receive Date: 20121113
  Receipt Date: 20121122
  Transmission Date: 20130627
  Serious: Yes (Other)
  Sender: FDA-Public Use
  Company Number: IE-009507513-1211IRL003285

PATIENT
  Age: 49 Year
  Sex: Female

DRUGS (2)
  1. DEXAMETHASONE [Suspect]
     Dosage: cumulative dose of 65 mg
     Route: 048
  2. CABERGOLINE [Interacting]
     Indication: PROLACTINOMA
     Dosage: 6 mg, qw

REACTIONS (2)
  - Osteonecrosis [Unknown]
  - Drug interaction [Unknown]
